FAERS Safety Report 20924826 (Version 5)
Quarter: 2023Q2

REPORT INFORMATION
  Report Type: Spontaneous
  Country: US (occurrence: US)
  Receive Date: 20220607
  Receipt Date: 20230604
  Transmission Date: 20230722
  Serious: No
  Sender: FDA-Public Use
  Company Number: US-PHARMAESSENTIA CORPORATION-US-2022-PEC-000536

PATIENT

DRUGS (14)
  1. BESREMI [Suspect]
     Active Substance: ROPEGINTERFERON ALFA-2B-NJFT
     Indication: Polycythaemia vera
     Dosage: 100 MICROGRAM, Q2W
     Route: 058
     Dates: start: 20220301
  2. BESREMI [Suspect]
     Active Substance: ROPEGINTERFERON ALFA-2B-NJFT
     Dosage: 100 MICROGRAM
     Route: 058
     Dates: start: 20220421
  3. BESREMI [Suspect]
     Active Substance: ROPEGINTERFERON ALFA-2B-NJFT
     Dosage: 100 MCG
     Route: 065
  4. BESREMI [Suspect]
     Active Substance: ROPEGINTERFERON ALFA-2B-NJFT
     Dosage: 100 MCG
     Route: 065
  5. BESREMI [Suspect]
     Active Substance: ROPEGINTERFERON ALFA-2B-NJFT
     Dosage: 100 MCG
     Route: 065
  6. BESREMI [Suspect]
     Active Substance: ROPEGINTERFERON ALFA-2B-NJFT
     Dosage: 100 MCG, Q2W
     Route: 058
  7. BESREMI [Suspect]
     Active Substance: ROPEGINTERFERON ALFA-2B-NJFT
     Dosage: 50 MCG, 2TW
     Route: 065
  8. BESREMI [Suspect]
     Active Substance: ROPEGINTERFERON ALFA-2B-NJFT
     Dosage: 50 MCG
     Route: 065
  9. CALCIUM [Concomitant]
     Active Substance: CALCIUM
     Indication: Supplementation therapy
     Dosage: 1200 MG, QD
     Route: 048
  10. CHOLECALCIFEROL [Concomitant]
     Active Substance: CHOLECALCIFEROL
     Indication: Supplementation therapy
     Dosage: 6000 UNITS, QD
     Route: 048
  11. FORTIFY [Concomitant]
     Active Substance: MENTHOL
     Indication: Supplementation therapy
     Dosage: 50BILLION UNITS, QD
     Route: 048
     Dates: start: 2022
  12. VITAMIN B COMPLEX [Concomitant]
     Active Substance: CYANOCOBALAMIN\DEXPANTHENOL\NIACINAMIDE\PYRIDOXINE HYDROCHLORIDE\RIBOFLAVIN 5^-PHOSPHATE SODIUM\THIA
     Indication: Supplementation therapy
     Dosage: UNK, QD
     Route: 048
  13. ASPIRIN [Concomitant]
     Active Substance: ASPIRIN
     Indication: Anticoagulant therapy
     Dosage: 81 MG, QD
     Route: 048
  14. ACETYLCYSTEINE [Concomitant]
     Active Substance: ACETYLCYSTEINE
     Indication: Analgesic intervention supportive therapy
     Dosage: 600 MG, QD
     Route: 048
     Dates: start: 202203

REACTIONS (19)
  - Anticipatory anxiety [Recovered/Resolved]
  - Serum ferritin decreased [Recovered/Resolved]
  - Blood iron decreased [Not Recovered/Not Resolved]
  - Haemoglobin increased [Unknown]
  - Haematocrit increased [Unknown]
  - Sleep apnoea syndrome [Unknown]
  - Palpitations [Recovered/Resolved]
  - COVID-19 [Recovered/Resolved]
  - Incorrect dose administered [Unknown]
  - Blood uric acid increased [Unknown]
  - Wrong technique in product usage process [Recovered/Resolved]
  - Product use complaint [Recovered/Resolved]
  - Mean cell haemoglobin decreased [Recovered/Resolved]
  - Depressed mood [Recovered/Resolved]
  - Laboratory test abnormal [Recovering/Resolving]
  - Alopecia [Recovered/Resolved]
  - Insomnia [Recovered/Resolved]
  - Fatigue [Recovered/Resolved]
  - Headache [Recovered/Resolved]

NARRATIVE: CASE EVENT DATE: 20220301
